FAERS Safety Report 23633210 (Version 1)
Quarter: 2024Q1

REPORT INFORMATION
  Report Type: Spontaneous
  Country: US (occurrence: US)
  Receive Date: 20240314
  Receipt Date: 20240314
  Transmission Date: 20240410
  Serious: No
  Sender: FDA-Public Use
  Company Number: US-ABBVIE-5678252

PATIENT
  Age: 39 Year
  Sex: Female

DRUGS (2)
  1. CYCLOSPORINE [Suspect]
     Active Substance: CYCLOSPORINE
     Indication: Blepharitis
     Dosage: FORM STRENGTH : 0.05 PERCENT, CYCLOSPORINE 0.5MG/ML EML?ONE DROP IN EACH EYE TWICE DAILY
     Route: 047
     Dates: start: 20240302
  2. CYCLOSPORINE [Suspect]
     Active Substance: CYCLOSPORINE
     Indication: Dry eye

REACTIONS (3)
  - Headache [Unknown]
  - Drug ineffective [Not Recovered/Not Resolved]
  - Dry eye [Not Recovered/Not Resolved]

NARRATIVE: CASE EVENT DATE: 20240301
